FAERS Safety Report 5447483-6 (Version None)
Quarter: 2007Q3

REPORT INFORMATION
  Report Type: 
  Country: None (occurrence: None)
  Receive Date: 20070910
  Receipt Date: 20070905
  Transmission Date: 20080115
  Serious: Yes (Hospitalization, Disabling)
  Sender: FDA-Public Use
  Company Number: A0678885A

PATIENT
  Sex: Male

DRUGS (2)
  1. REQUIP [Suspect]
     Indication: RESTLESS LEGS SYNDROME
     Dosage: .25MG PER DAY
     Route: 048
     Dates: start: 20070901, end: 20070901
  2. NO CONCURRENT MEDICATION [Concomitant]

REACTIONS (4)
  - FACIAL PALSY [None]
  - GAIT DISTURBANCE [None]
  - PARAESTHESIA [None]
  - PARALYSIS [None]
